FAERS Safety Report 23665420 (Version 1)
Quarter: 2024Q1

REPORT INFORMATION
  Report Type: Spontaneous
  Country: FR (occurrence: FR)
  Receive Date: 20240323
  Receipt Date: 20240323
  Transmission Date: 20240410
  Serious: Yes (Life-Threatening, Other)
  Sender: FDA-Public Use
  Company Number: None

PATIENT
  Age: 23 Year
  Sex: Male
  Weight: 59 kg

DRUGS (4)
  1. ADALIMUMAB [Suspect]
     Active Substance: ADALIMUMAB\ISOPROPYL ALCOHOL
     Indication: Crohn^s disease
     Dosage: DAILY DOSE: 2.84 MG, TOTAL: 40.0 MG
     Route: 058
     Dates: start: 20190206
  2. BEZAFIBRATE [Suspect]
     Active Substance: BEZAFIBRATE
     Indication: Cholangitis sclerosing
     Dosage: DAILY DOSE: 400.0 MG, FORM: UNKNOWN, BEZAFIBRATE - BP
     Route: 065
     Dates: start: 20200929
  3. URSODIOL [Suspect]
     Active Substance: URSODIOL
     Indication: Cholangitis sclerosing
     Dosage: DAILY DOSE: 1250.0 MG
     Route: 065
     Dates: start: 20171128
  4. AZATHIOPRINE SODIUM [Suspect]
     Active Substance: AZATHIOPRINE SODIUM
     Indication: Crohn^s disease
     Dosage: DAILY DOSE: 1.0 DF
     Route: 065
     Dates: start: 20180127

REACTIONS (1)
  - Primary mediastinal large B-cell lymphoma stage IV [Not Recovered/Not Resolved]

NARRATIVE: CASE EVENT DATE: 20221209
